FAERS Safety Report 4340346-9 (Version None)
Quarter: 2004Q2

REPORT INFORMATION
  Report Type: 
  Country: None (occurrence: None)
  Receive Date: 20040406
  Receipt Date: 20040326
  Transmission Date: 20050107
  Serious: Yes (Death, Life-Threatening)
  Sender: FDA-Public Use
  Company Number: HQWYE196408JAN04

PATIENT
  Age: 66 Year
  Sex: Male

DRUGS (1)
  1. REFACTO [Suspect]
     Indication: FACTOR VIII DEFICIENCY
     Dosage: 2000 IU ON DEMAND
     Route: 042
     Dates: end: 20031218

REACTIONS (1)
  - HAEMORRHAGE INTRACRANIAL [None]
